FAERS Safety Report 25507333 (Version 1)
Quarter: 2025Q3

REPORT INFORMATION
  Report Type: Spontaneous
  Country: CA (occurrence: CA)
  Receive Date: 20250703
  Receipt Date: 20250703
  Transmission Date: 20251020
  Serious: Yes (Other)
  Sender: TEVA
  Company Number: CA-TEVA-VS-3308161

PATIENT
  Age: 65 Year
  Sex: Male

DRUGS (5)
  1. METHOTREXATE [Suspect]
     Active Substance: METHOTREXATE
     Indication: Immunoglobulin G4 related disease
     Dosage: 1 DF
     Route: 065
     Dates: start: 202410
  2. METHOTREXATE [Suspect]
     Active Substance: METHOTREXATE
     Indication: Immunoglobulin G4 related disease
     Route: 065
  3. PREDNISONE [Concomitant]
     Active Substance: PREDNISONE
     Indication: Product used for unknown indication
     Route: 065
  4. PREDNISONE [Suspect]
     Active Substance: PREDNISONE
     Indication: Product used for unknown indication
     Route: 065
  5. PREDNISONE [Suspect]
     Active Substance: PREDNISONE
     Indication: Product used for unknown indication
     Route: 065

REACTIONS (6)
  - Exophthalmos [Not Recovered/Not Resolved]
  - Weight increased [Unknown]
  - Off label use [Not Recovered/Not Resolved]
  - Gait disturbance [Unknown]
  - Weight increased [Not Recovered/Not Resolved]
  - Dyspnoea [Unknown]
